FAERS Safety Report 4919955-1 (Version None)
Quarter: 2006Q1

REPORT INFORMATION
  Report Type: 
  Country: None (occurrence: None)
  Receive Date: 20060216
  Receipt Date: 20060203
  Transmission Date: 20060701
  Serious: Yes (Life-Threatening)
  Sender: FDA-Public Use
  Company Number: 2006018186

PATIENT
  Age: 71 Year
  Sex: Female

DRUGS (1)
  1. DOXORUBICIN HCL [Suspect]
     Indication: UTERINE CANCER
     Dosage: 66 MG, INTRAVENOUS
     Route: 042
     Dates: start: 20040921, end: 20040921

REACTIONS (1)
  - DEEP VEIN THROMBOSIS [None]
